FAERS Safety Report 24699022 (Version 1)
Quarter: 2024Q4

REPORT INFORMATION
  Report Type: Spontaneous
  Country: FR (occurrence: FR)
  Receive Date: 20241205
  Receipt Date: 20241205
  Transmission Date: 20250114
  Serious: Yes (Death, Other)
  Sender: AUROBINDO
  Company Number: FR-AFSSAPS-PV2024001065

PATIENT
  Age: 76 Year
  Sex: Female

DRUGS (8)
  1. LIDOCAINE [Suspect]
     Active Substance: LIDOCAINE
     Indication: Local anaesthesia
     Dosage: UNK
     Route: 058
     Dates: start: 20241017, end: 20241017
  2. LIDOCAINE [Suspect]
     Active Substance: LIDOCAINE
     Dosage: UNK
     Route: 014
     Dates: start: 20241017, end: 20241017
  3. ROPIVACAINE [Suspect]
     Active Substance: ROPIVACAINE
     Indication: Local anaesthesia
     Dosage: UNK
     Route: 058
     Dates: start: 20241017, end: 20241017
  4. ROPIVACAINE [Suspect]
     Active Substance: ROPIVACAINE
     Dosage: UNK
     Route: 014
     Dates: start: 20241017, end: 20241017
  5. TRAMADOL HYDROCHLORIDE [Suspect]
     Active Substance: TRAMADOL HYDROCHLORIDE
     Indication: Premedication
     Dosage: 100 MILLIGRAM (SINGLE DOSE)
     Route: 042
     Dates: start: 20241017, end: 20241017
  6. TRAMADOL HYDROCHLORIDE [Suspect]
     Active Substance: TRAMADOL HYDROCHLORIDE
     Dosage: UNK
     Route: 065
  7. ATARAX [Suspect]
     Active Substance: HYDROXYZINE HYDROCHLORIDE
     Indication: Product used for unknown indication
     Dosage: 25 MILLIGRAM
     Route: 048
     Dates: start: 20241017, end: 20241017
  8. PERFALGAN [Concomitant]
     Active Substance: ACETAMINOPHEN
     Indication: Premedication
     Dosage: 1 GRAM (SINGLE DOSE)
     Route: 042

REACTIONS (1)
  - Cardiac arrest [Fatal]

NARRATIVE: CASE EVENT DATE: 20241017
